FAERS Safety Report 15036163 (Version 1)
Quarter: 2018Q2

REPORT INFORMATION
  Report Type: Spontaneous
  Country: CZ (occurrence: CZ)
  Receive Date: 20180620
  Receipt Date: 20180620
  Transmission Date: 20180711
  Serious: Yes (Life-Threatening, Hospitalization, Other)
  Sender: FDA-Public Use
  Company Number: CZ-TEVA-2018-CZ-909384

PATIENT
  Age: 61 Year
  Sex: Male

DRUGS (7)
  1. MYCOPHENOLATE MOFETIL. [Suspect]
     Active Substance: MYCOPHENOLATE MOFETIL
     Indication: IMMUNOSUPPRESSANT DRUG THERAPY
     Dosage: 2000 MILLIGRAM DAILY;
     Route: 065
  2. PREDNISONE. [Suspect]
     Active Substance: PREDNISONE
     Indication: IMMUNOSUPPRESSANT DRUG THERAPY
     Dosage: 1 MG/KG DAILY; DOSE TAPERED
     Route: 065
  3. TACROLIMUS. [Suspect]
     Active Substance: TACROLIMUS
     Indication: IMMUNOSUPPRESSANT DRUG THERAPY
     Dosage: INITIAL DOSE NOT STATED
     Route: 065
  4. MYCOPHENOLATE MOFETIL. [Suspect]
     Active Substance: MYCOPHENOLATE MOFETIL
     Dosage: 1000 MILLIGRAM DAILY;
     Route: 065
  5. MYCOPHENOLATE MOFETIL. [Suspect]
     Active Substance: MYCOPHENOLATE MOFETIL
     Dosage: AT THE TIME OF ADMISSION TO TRANSPLANT CENTER
     Route: 065
  6. PREDNISONE. [Suspect]
     Active Substance: PREDNISONE
     Dosage: 20 MILLIGRAM DAILY; AT 1 MONTH AFTER TRANSPLANTATION
     Route: 065
  7. PREDNISONE. [Suspect]
     Active Substance: PREDNISONE
     Dosage: 7.5 MILLIGRAM DAILY; AT 12 MONTHS AFTER TRANSPLANTATION
     Route: 065

REACTIONS (4)
  - Cytomegalovirus infection [Recovered/Resolved]
  - Phaeohyphomycosis [Recovered/Resolved]
  - Alternaria infection [Recovered/Resolved]
  - Respiratory tract infection fungal [Recovered/Resolved]
